FAERS Safety Report 5779755-X (Version None)
Quarter: 2008Q2

REPORT INFORMATION
  Report Type: 
  Country: None (occurrence: None)
  Receive Date: 20080617
  Receipt Date: 20080604
  Transmission Date: 20081010
  Serious: Yes (Death, Hospitalization)
  Sender: FDA-Public Use
  Company Number: SOLAGE0800006

PATIENT
  Age: 19 Year
  Sex: Male

DRUGS (2)
  1. SOLAGE [Suspect]
  2. ALL-TRANSRETINOIC ACID (ATRA)(TRETINOIN) [Suspect]

REACTIONS (9)
  - ACUTE PROMYELOCYTIC LEUKAEMIA [None]
  - HYPOTENSION [None]
  - HYPOXIA [None]
  - ILEAL PERFORATION [None]
  - PERITONITIS [None]
  - RETINOIC ACID SYNDROME [None]
  - SOMNOLENCE [None]
  - TACHYCARDIA [None]
  - TACHYPNOEA [None]
